FAERS Safety Report 21376019 (Version 2)
Quarter: 2022Q4

REPORT INFORMATION
  Report Type: Report from Study
  Country: US (occurrence: US)
  Receive Date: 20220926
  Receipt Date: 20221102
  Transmission Date: 20230113
  Serious: Yes (Death, Other)
  Sender: FDA-Public Use
  Company Number: US-GW PHARMA-2022-US-030579

PATIENT
  Sex: Female
  Weight: 12.9 kg

DRUGS (1)
  1. EPIDIOLEX [Suspect]
     Active Substance: CANNABIDIOL
     Indication: Lennox-Gastaut syndrome
     Dosage: 1.9 MILLILITER, BID
     Route: 048

REACTIONS (3)
  - COVID-19 [Fatal]
  - Mitochondrial encephalomyopathy [Fatal]
  - Respiratory failure [Fatal]
